FAERS Safety Report 5853766-8 (Version None)
Quarter: 2008Q3

REPORT INFORMATION
  Report Type: 
  Country: None (occurrence: None)
  Receive Date: 20080822
  Receipt Date: 20080812
  Transmission Date: 20090109
  Serious: Yes (Other)
  Sender: FDA-Public Use
  Company Number: US-BAYER-200813354BCC

PATIENT
  Age: 78 Year
  Sex: Female
  Weight: 67 kg

DRUGS (11)
  1. ASPIRIN [Suspect]
     Indication: ISCHAEMIC HEART DISEASE PROPHYLAXIS
     Dosage: TOTAL DAILY DOSE: 81 MG  UNIT DOSE: 81 MG
     Route: 048
  2. ALEVE (CAPLET) [Suspect]
     Indication: OSTEOARTHRITIS
     Dosage: TOTAL DAILY DOSE: 220 MG  UNIT DOSE: 220 MG
     Route: 048
     Dates: end: 20080601
  3. PROTONIX [Concomitant]
  4. MAALOX, EXTRA STRENGTH [Concomitant]
  5. PEPCID COMPLETE [Concomitant]
  6. METFORMIN [Concomitant]
  7. ALTACE [Concomitant]
  8. PRAVASTATIN [Concomitant]
  9. THYROID MEDICATION (NOS) [Concomitant]
  10. NASONEX [Concomitant]
  11. ZYRTEC [Concomitant]

REACTIONS (4)
  - BARRETT'S OESOPHAGUS [None]
  - CONTUSION [None]
  - HAEMATEMESIS [None]
  - OESOPHAGITIS [None]
